FAERS Safety Report 7774222-6 (Version None)
Quarter: 2011Q3

REPORT INFORMATION
  Report Type: 
  Country: None (occurrence: None)
  Receive Date: 20110923
  Receipt Date: 20110920
  Transmission Date: 20111222
  Serious: Yes (Death, Congenital Anomaly)
  Sender: FDA-Public Use
  Company Number: DK-B.I. PHARMACEUTICALS,INC./RIDGEFIELD-2010-SW-00337DB

PATIENT
  Sex: Female
  Weight: 0.117 kg

DRUGS (2)
  1. LEVOTHYROXINE SODIUM [Concomitant]
     Dosage: DF
     Route: 064
  2. MICARDIS HCT [Suspect]
     Indication: HYPERTENSION
     Route: 064

REACTIONS (4)
  - CHORIOAMNIONITIS [None]
  - RETROPLACENTAL HAEMATOMA [None]
  - CLEFT PALATE [None]
  - MATERNAL EXPOSURE DURING PREGNANCY [None]
